FAERS Safety Report 18225142 (Version 1)
Quarter: 2020Q3

REPORT INFORMATION
  Report Type: Spontaneous
  Country: PL (occurrence: PL)
  Receive Date: 20200902
  Receipt Date: 20200902
  Transmission Date: 20201103
  Serious: Yes (Other)
  Sender: FDA-Public Use
  Company Number: PL-AUROBINDO-AUR-APL-2019-044914

PATIENT
  Age: 12 Year
  Sex: Female

DRUGS (2)
  1. GABAPENTIN. [Suspect]
     Active Substance: GABAPENTIN
     Indication: COMPLEX REGIONAL PAIN SYNDROME
     Dosage: 300 MILLIGRAM,1 TOTAL 300 MILLIGRAM DAILY; 1 TIME
     Route: 048
  2. AMITRIPTYLINE [Suspect]
     Active Substance: AMITRIPTYLINE
     Indication: COMPLEX REGIONAL PAIN SYNDROME
     Dosage: 10 MILLIGRAM, ONCE A DAY,(10 MILLIGRAM DAILY; AT NIGHT)
     Route: 048

REACTIONS (1)
  - Drug ineffective [Unknown]
